FAERS Safety Report 9085894 (Version 1)
Quarter: 2013Q1

REPORT INFORMATION
  Report Type: Spontaneous
  Country: US (occurrence: US)
  Receive Date: 20130218
  Receipt Date: 20130218
  Transmission Date: 20140127
  Serious: Yes (Other)
  Sender: FDA-Public Use
  Company Number: US-BAYER-2013-018216

PATIENT
  Age: 68 Year
  Sex: Female

DRUGS (2)
  1. MIRENA [Suspect]
     Indication: ENDOMETRIAL CANCER
     Dosage: 20 MCG/24HR, CONT
     Route: 015
     Dates: start: 20130129
  2. MEGACE [Suspect]

REACTIONS (6)
  - Post procedural haemorrhage [None]
  - Off label use [None]
  - Procedural nausea [None]
  - Malaise [None]
  - Hunger [None]
  - Personality disorder [None]
